FAERS Safety Report 9156181 (Version 1)
Quarter: 2013Q1

REPORT INFORMATION
  Report Type: Spontaneous
  Country: US (occurrence: US)
  Receive Date: 20130123
  Receipt Date: 20130123
  Transmission Date: 20140127
  Serious: No
  Sender: FDA-Public Use
  Company Number: US-BRACCO-008287

PATIENT
  Age: 72 Year
  Sex: Female
  Weight: 87 kg

DRUGS (4)
  1. MULTIHANCE [Suspect]
     Indication: NUCLEAR MAGNETIC RESONANCE IMAGING
     Route: 042
     Dates: start: 20120702, end: 20120702
  2. MULTIHANCE [Suspect]
     Indication: BACK PAIN
     Route: 042
     Dates: start: 20120702, end: 20120702
  3. MULTIHANCE [Suspect]
     Indication: PAIN IN EXTREMITY
     Route: 042
     Dates: start: 20120702, end: 20120702
  4. MULTIHANCE [Suspect]
     Indication: MUSCULAR WEAKNESS
     Route: 042
     Dates: start: 20120702, end: 20120702

REACTIONS (7)
  - Dyspnoea [Recovered/Resolved]
  - Throat tightness [Recovered/Resolved]
  - Vomiting [Recovered/Resolved]
  - Cough [Recovered/Resolved]
  - Parosmia [Recovered/Resolved]
  - Dysgeusia [Recovered/Resolved]
  - Nausea [Recovered/Resolved]
